FAERS Safety Report 11805404 (Version 1)
Quarter: 2015Q4

REPORT INFORMATION
  Report Type: Report from Study
  Country: CA (occurrence: CA)
  Receive Date: 20151207
  Receipt Date: 20151207
  Transmission Date: 20160305
  Serious: Yes (Other)
  Sender: FDA-Public Use
  Company Number: CA-ROCHE-1636316

PATIENT
  Age: 55 Year
  Sex: Female

DRUGS (10)
  1. ESBRIET [Suspect]
     Active Substance: PIRFENIDONE
     Route: 048
     Dates: start: 2015
  2. ESBRIET [Suspect]
     Active Substance: PIRFENIDONE
     Dosage: 1602 MG DAILY
     Route: 048
     Dates: start: 201509
  3. ESBRIET [Suspect]
     Active Substance: PIRFENIDONE
     Route: 048
     Dates: start: 2015, end: 20151117
  4. OMEPRAZOLE. [Concomitant]
     Active Substance: OMEPRAZOLE
  5. PLAQUENIL [Concomitant]
     Active Substance: HYDROXYCHLOROQUINE SULFATE
  6. NAPROXEN. [Concomitant]
     Active Substance: NAPROXEN
  7. DECADRON (CANADA) [Concomitant]
  8. OXYGEN. [Concomitant]
     Active Substance: OXYGEN
  9. ESBRIET [Suspect]
     Active Substance: PIRFENIDONE
     Indication: IDIOPATHIC PULMONARY FIBROSIS
     Route: 048
     Dates: start: 20150913
  10. SPIRONOLACTONE. [Concomitant]
     Active Substance: SPIRONOLACTONE

REACTIONS (16)
  - Oesophageal pain [Recovered/Resolved]
  - Abdominal distension [Unknown]
  - Weight decreased [Not Recovered/Not Resolved]
  - Decreased appetite [Not Recovered/Not Resolved]
  - Cough [Not Recovered/Not Resolved]
  - Cough [Unknown]
  - Micturition frequency decreased [Unknown]
  - Dry mouth [Not Recovered/Not Resolved]
  - Lip dry [Not Recovered/Not Resolved]
  - Fatigue [Not Recovered/Not Resolved]
  - Nasal dryness [Not Recovered/Not Resolved]
  - Nausea [Not Recovered/Not Resolved]
  - Insomnia [Not Recovered/Not Resolved]
  - Dyspnoea [Unknown]
  - Hot flush [Unknown]
  - Hypoaesthesia [Unknown]

NARRATIVE: CASE EVENT DATE: 201509
